FAERS Safety Report 7484267-1 (Version None)
Quarter: 2011Q2

REPORT INFORMATION
  Report Type: 
  Country: None (occurrence: None)
  Receive Date: 20110517
  Receipt Date: 20101019
  Transmission Date: 20111010
  Serious: Yes (Hospitalization, Other)
  Sender: FDA-Public Use
  Company Number: US-BAYER-201036603NA

PATIENT
  Age: 31 Year
  Sex: Female
  Weight: 74.83 kg

DRUGS (6)
  1. VICODIN [Concomitant]
  2. YAZ [Suspect]
     Indication: PREMENSTRUAL SYNDROME
     Dosage: UNK
     Dates: start: 20090301
  3. EXCEDRIN (MIGRAINE) [Concomitant]
     Indication: MIGRAINE
  4. YAZ [Suspect]
  5. YAZ [Suspect]
     Indication: ACNE
     Dosage: UNK
     Dates: start: 20070101
  6. IBUPROFEN [Concomitant]

REACTIONS (6)
  - CHOLECYSTITIS [None]
  - CHOLELITHIASIS [None]
  - ABDOMINAL PAIN UPPER [None]
  - NAUSEA [None]
  - ABDOMINAL PAIN [None]
  - INJURY [None]
